FAERS Safety Report 18094429 (Version 1)
Quarter: 2020Q3

REPORT INFORMATION
  Report Type: Spontaneous
  Country: US (occurrence: US)
  Receive Date: 20200731
  Receipt Date: 20200731
  Transmission Date: 20201103
  Serious: No
  Sender: FDA-Public Use
  Company Number: US-SA-2020SA197850

PATIENT

DRUGS (8)
  1. DUPIXENT [Suspect]
     Active Substance: DUPILUMAB
     Indication: DERMATITIS ATOPIC
     Dosage: 300 MG, QOW
     Route: 058
     Dates: start: 20190627
  2. MULTIVIT [VITAMINS NOS] [Concomitant]
  3. BENADRYL [Concomitant]
     Active Substance: DIPHENHYDRAMINE HYDROCHLORIDE
  4. TRIAMCINOLON [TRIAMCINOLONE ACETONIDE] [Concomitant]
  5. VITAMIN D3 [Concomitant]
     Active Substance: CHOLECALCIFEROL
  6. ZYRTEC [Concomitant]
     Active Substance: CETIRIZINE HYDROCHLORIDE
  7. INTUNIV [Concomitant]
     Active Substance: GUANFACINE HYDROCHLORIDE
  8. SPIRULINA [SPIRULINA SPP.] [Concomitant]

REACTIONS (3)
  - Dermatitis atopic [Not Recovered/Not Resolved]
  - Eczema [Not Recovered/Not Resolved]
  - Product use issue [Unknown]

NARRATIVE: CASE EVENT DATE: 20190627
